FAERS Safety Report 10273609 (Version 3)
Quarter: 2014Q3

REPORT INFORMATION
  Report Type: Spontaneous
  Country: JP (occurrence: JP)
  Receive Date: 20140702
  Receipt Date: 20140716
  Transmission Date: 20150326
  Serious: Yes (Hospitalization)
  Sender: FDA-Public Use
  Company Number: JP-JNJFOC-20140700212

PATIENT
  Age: 76 Year
  Sex: Female

DRUGS (4)
  1. ISCOTIN [Concomitant]
     Active Substance: ISONIAZID
     Route: 048
     Dates: start: 20091126, end: 20101020
  2. REMICADE [Suspect]
     Active Substance: INFLIXIMAB
     Indication: RHEUMATOID ARTHRITIS
     Dosage: THERAPY DURATION WAS FOR 25 DAYS
     Route: 042
     Dates: start: 20100325
  3. REMICADE [Suspect]
     Active Substance: INFLIXIMAB
     Indication: RHEUMATOID ARTHRITIS
     Dosage: 26TH INFUSION??THERAPY DURATION WAS FOR 1 DAY
     Route: 042
     Dates: start: 20131112, end: 20131112
  4. RHEUMATREX [Suspect]
     Active Substance: METHOTREXATE SODIUM
     Indication: RHEUMATOID ARTHRITIS
     Route: 048
     Dates: start: 20131119

REACTIONS (1)
  - Tuberculous pleurisy [Recovering/Resolving]

NARRATIVE: CASE EVENT DATE: 20131112
